FAERS Safety Report 5582698-8 (Version None)
Quarter: 2008Q1

REPORT INFORMATION
  Report Type: 
  Country: None (occurrence: None)
  Receive Date: 20080107
  Receipt Date: 20071227
  Transmission Date: 20080703
  Serious: Yes (Hospitalization)
  Sender: FDA-Public Use
  Company Number: FR-BRISTOL-MYERS SQUIBB COMPANY-14030399

PATIENT
  Age: 28 Year
  Sex: Male

DRUGS (3)
  1. ENDOXAN [Suspect]
     Indication: LYMPHOMA
     Route: 042
     Dates: start: 20070721, end: 20070724
  2. ETOPOPHOS PRESERVATIVE FREE [Suspect]
     Indication: LYMPHOMA
     Route: 042
     Dates: start: 20070721, end: 20070724
  3. EMEND [Concomitant]
     Indication: NAUSEA
     Route: 048
     Dates: start: 20070721, end: 20070721

REACTIONS (9)
  - ABDOMINAL PAIN [None]
  - ANAEMIA [None]
  - CYSTITIS HAEMORRHAGIC [None]
  - DIARRHOEA [None]
  - FALL [None]
  - HAEMATURIA [None]
  - INFECTION [None]
  - SEPTIC SHOCK [None]
  - SYNCOPE [None]
